FAERS Safety Report 25451275 (Version 3)
Quarter: 2025Q3

REPORT INFORMATION
  Report Type: Report from Study
  Country: US (occurrence: US)
  Receive Date: 20250618
  Receipt Date: 20250805
  Transmission Date: 20251020
  Serious: No
  Sender: AGIOS PHARMACEUTICALS
  Company Number: US-AGIOS-2505US04287

PATIENT
  Sex: Male
  Weight: 82.993 kg

DRUGS (3)
  1. MITAPIVAT [Suspect]
     Active Substance: MITAPIVAT
     Indication: Pyruvate kinase deficiency anaemia
     Route: 065
     Dates: start: 20250502
  2. GLPID [Concomitant]
     Indication: Product used for unknown indication
     Route: 065
  3. MOUNJARO [Concomitant]
     Active Substance: TIRZEPATIDE
     Indication: Glycosylated haemoglobin increased
     Route: 065

REACTIONS (7)
  - Laboratory test abnormal [Unknown]
  - Therapeutic response unexpected [Unknown]
  - Product packaging difficult to open [Unknown]
  - Glycosylated haemoglobin increased [Unknown]
  - Weight decreased [Unknown]
  - Blood bilirubin abnormal [Unknown]
  - Jaundice [Unknown]
